FAERS Safety Report 18541411 (Version 1)
Quarter: 2020Q4

REPORT INFORMATION
  Report Type: Spontaneous
  Country: SK (occurrence: SK)
  Receive Date: 20201124
  Receipt Date: 20201124
  Transmission Date: 20210114
  Serious: Yes (Death)
  Sender: FDA-Public Use
  Company Number: SK-PFIZER INC-2020452481

PATIENT
  Age: 68 Year
  Sex: Female
  Weight: 80 kg

DRUGS (8)
  1. METHYLPREDNISOLONE. [Suspect]
     Active Substance: METHYLPREDNISOLONE
     Indication: SUPPORTIVE CARE
     Dosage: UNK
  2. METHYLPREDNISOLONE. [Suspect]
     Active Substance: METHYLPREDNISOLONE
     Indication: MYELODYSPLASTIC SYNDROME
  3. NOVALGIN (METAMIZOLE SODIUM) [Suspect]
     Active Substance: METAMIZOLE SODIUM
     Indication: SUPPORTIVE CARE
     Dosage: UNK
  4. PROBIOTICS [Suspect]
     Active Substance: PROBIOTICS NOS
     Indication: SUPPORTIVE CARE
     Dosage: UNK
  5. OMEPRAZOL [Suspect]
     Active Substance: OMEPRAZOLE
     Indication: SUPPORTIVE CARE
     Dosage: UNK
  6. TELMISARTAN. [Suspect]
     Active Substance: TELMISARTAN
     Indication: SUPPORTIVE CARE
     Dosage: UNK
  7. HYLAK [LACTOBACILLUS HELVETICUS] [Suspect]
     Active Substance: LACTOBACILLUS HELVETICUS
     Indication: SUPPORTIVE CARE
     Dosage: UNK
  8. ZINNAT [CEFUROXIME AXETIL] [Suspect]
     Active Substance: CEFUROXIME
     Dosage: UNK

REACTIONS (1)
  - Drug ineffective [Fatal]
